FAERS Safety Report 7609884-7 (Version None)
Quarter: 2011Q3

REPORT INFORMATION
  Report Type: 
  Country: None (occurrence: None)
  Receive Date: 20110714
  Receipt Date: 20110614
  Transmission Date: 20111222
  Serious: Yes (Other)
  Sender: FDA-Public Use
  Company Number: ES-ALLERGAN-1109386US

PATIENT
  Age: 74 Year
  Sex: Female

DRUGS (1)
  1. TROSPIUM CHLORIDE [Suspect]
     Indication: INCONTINENCE
     Dosage: 40 MG, BID
     Route: 048
     Dates: start: 20110426, end: 20110514

REACTIONS (1)
  - MUSCLE SPASMS [None]
